FAERS Safety Report 9450155 (Version 1)
Quarter: 2013Q3

REPORT INFORMATION
  Report Type: Spontaneous
  Country: US (occurrence: US)
  Receive Date: 20130809
  Receipt Date: 20130809
  Transmission Date: 20140515
  Serious: No
  Sender: FDA-Public Use
  Company Number: US-GLAXOSMITHKLINE-A1003233A

PATIENT
  Sex: Female

DRUGS (4)
  1. REQUIP XL [Suspect]
     Indication: RESTLESS LEGS SYNDROME
     Dosage: 2MG PER DAY
     Route: 048
     Dates: start: 2011, end: 201210
  2. ROPINIROLE [Suspect]
     Indication: RESTLESS LEGS SYNDROME
     Route: 048
     Dates: start: 2012, end: 2012
  3. EFFEXOR XR [Concomitant]
  4. NEXIUM [Concomitant]

REACTIONS (2)
  - Hyperhidrosis [Recovered/Resolved]
  - Drug ineffective [Unknown]
